FAERS Safety Report 9270498 (Version 5)
Quarter: 2014Q2

REPORT INFORMATION
  Report Type: Spontaneous
  Country: US (occurrence: US)
  Receive Date: 20130503
  Receipt Date: 20140521
  Transmission Date: 20141212
  Serious: Yes (Other)
  Sender: FDA-Public Use
  Company Number: US-009507513-1304USA016944

PATIENT
  Sex: Male
  Weight: 87.98 kg

DRUGS (1)
  1. PROPECIA [Suspect]
     Indication: ALOPECIA
     Dosage: 1 MG, QD
     Route: 048
     Dates: start: 1998, end: 2000

REACTIONS (51)
  - Surgery [Unknown]
  - Intervertebral disc operation [Unknown]
  - Varicocele repair [Recovered/Resolved]
  - Cognitive disorder [Not Recovered/Not Resolved]
  - Hypogonadism male [Unknown]
  - Anxiety [Recovered/Resolved]
  - Lumbar radiculopathy [Unknown]
  - Prostatitis [Recovering/Resolving]
  - Acromegaly [Unknown]
  - Vitamin D deficiency [Unknown]
  - Dyslipidaemia [Unknown]
  - Ventricular extrasystoles [Unknown]
  - Intervertebral disc disorder [Unknown]
  - Fatigue [Unknown]
  - Circumcision [Unknown]
  - Sleep disorder [Unknown]
  - Vitamin B12 deficiency [Unknown]
  - Zinc deficiency [Unknown]
  - Basedow^s disease [Unknown]
  - Hyperthyroidism [Unknown]
  - Thyroiditis acute [Unknown]
  - Nocturia [Unknown]
  - Wisdom teeth removal [Unknown]
  - Varicocele [Unknown]
  - Pollakiuria [Unknown]
  - Mental disorder [Unknown]
  - Libido decreased [Not Recovered/Not Resolved]
  - Erectile dysfunction [Unknown]
  - Depression [Unknown]
  - Depression [Recovered/Resolved]
  - Sexual dysfunction [Not Recovered/Not Resolved]
  - Anhedonia [Unknown]
  - Muscle disorder [Unknown]
  - Asthenia [Unknown]
  - Radiculitis lumbosacral [Unknown]
  - Radiculitis [Unknown]
  - Neuritis [Unknown]
  - Renal cyst [Unknown]
  - Skin disorder [Unknown]
  - Feeling abnormal [Unknown]
  - Nephroptosis [Unknown]
  - Gastrooesophageal reflux disease [Unknown]
  - Limb discomfort [Unknown]
  - Tension [Unknown]
  - Bipolar I disorder [Unknown]
  - Skin papilloma [Unknown]
  - Ligament rupture [Unknown]
  - Musculoskeletal pain [Unknown]
  - Hypersensitivity [Unknown]
  - Urticaria chronic [Unknown]
  - Fall [Unknown]
